FAERS Safety Report 9254602 (Version 2)
Quarter: 2013Q3

REPORT INFORMATION
  Report Type: Spontaneous
  Country: CA (occurrence: CA)
  Receive Date: 20130425
  Receipt Date: 20130726
  Transmission Date: 20140515
  Serious: Yes (Death)
  Sender: FDA-Public Use
  Company Number: 2013SP003732

PATIENT
  Sex: 0

DRUGS (8)
  1. DIPYRIDAMOLE [Suspect]
     Indication: NEOPLASM
     Route: 048
  2. METRONIDAZOLE [Suspect]
     Indication: NEOPLASM
     Route: 048
  3. METRONIDAZOLE [Suspect]
     Indication: NEOPLASM
     Route: 054
  4. METRONIDAZOLE [Suspect]
     Indication: NEOPLASM
     Route: 054
  5. ETOPOSIDE [Suspect]
     Indication: NEOPLASM
     Route: 042
  6. TAMOXIFEN [Suspect]
     Indication: NEOPLASM
     Route: 048
  7. CICLOSPORIN [Suspect]
     Indication: NEOPLASM
     Route: 048
  8. KETOCONAZOLE [Suspect]
     Indication: NEOPLASM
     Route: 048

REACTIONS (1)
  - Neutropenic sepsis [Fatal]
